FAERS Safety Report 8468915-5 (Version None)
Quarter: 2012Q2

REPORT INFORMATION
  Report Type: 
  Country: None (occurrence: None)
  Receive Date: 20120626
  Receipt Date: 20100629
  Transmission Date: 20120825
  Serious: Yes (Other)
  Sender: FDA-Public Use
  Company Number: US-ROCHE-713107

PATIENT
  Sex: Female
  Weight: 43.1 kg

DRUGS (6)
  1. BONIVA [Suspect]
     Indication: OSTEOPOROSIS
     Dosage: ONE DOSE 2-3 YEARS AGO, SECOND INDICATION: BONE DENSITY SCAN-4
     Route: 048
     Dates: start: 20080101, end: 20080101
  2. ASPIRIN [Concomitant]
  3. INDERAL [Concomitant]
     Dosage: DRUG REPORTED AS INDERAL XR
  4. CALCIUM [Concomitant]
  5. XANAX [Concomitant]
  6. ACETAMINOPHEN [Concomitant]
     Dosage: EXTRA STRENGTH

REACTIONS (6)
  - CHEST DISCOMFORT [None]
  - DYSPNOEA [None]
  - ATRIAL FIBRILLATION [None]
  - HEADACHE [None]
  - CARDIAC FLUTTER [None]
  - BLOOD PRESSURE INCREASED [None]
